FAERS Safety Report 18616581 (Version 1)
Quarter: 2020Q4

REPORT INFORMATION
  Report Type: Spontaneous
  Country: SE (occurrence: SE)
  Receive Date: 20201215
  Receipt Date: 20201215
  Transmission Date: 20210114
  Serious: Yes (Death)
  Sender: FDA-Public Use
  Company Number: SE-ACCORD-210874

PATIENT
  Age: 60 Year
  Sex: Male

DRUGS (15)
  1. OZEMPIC [Concomitant]
     Active Substance: SEMAGLUTIDE
  2. FURIX [Concomitant]
     Dosage: STRENGTH:40MG
  3. NOVORAPID [Concomitant]
     Active Substance: INSULIN ASPART
     Dosage: 10+10 E
  4. ZOLPIDEM [Concomitant]
     Active Substance: ZOLPIDEM TARTRATE
     Dosage: VB
  5. CANDESARTAN. [Concomitant]
     Active Substance: CANDESARTAN
  6. BISOPROLOL [Concomitant]
     Active Substance: BISOPROLOL
  7. PENTASA [Concomitant]
     Active Substance: MESALAMINE
  8. ABASAGLAR [Concomitant]
     Active Substance: INSULIN GLARGINE
     Dosage: 20+20 E
  9. OXYCONTIN [Concomitant]
     Active Substance: OXYCODONE HYDROCHLORIDE
     Dosage: VB
  10. OMEPRAZOLE. [Concomitant]
     Active Substance: OMEPRAZOLE
  11. ATORVASTATIN/ATORVASTATIN CALCIUM [Suspect]
     Active Substance: ATORVASTATIN CALCIUM
     Indication: PRODUCT USED FOR UNKNOWN INDICATION
     Dates: start: 20200423, end: 20200911
  12. TROMBYL [Concomitant]
     Active Substance: ASPIRIN
     Dosage: STRENGTH:75 MG
  13. PLAVIX [Concomitant]
     Active Substance: CLOPIDOGREL BISULFATE
  14. URSOFALK [Concomitant]
     Active Substance: URSODIOL
  15. ALVEDON FORTE [Concomitant]
     Active Substance: ACETAMINOPHEN
     Dosage: VB

REACTIONS (1)
  - Necrotising myositis [Fatal]

NARRATIVE: CASE EVENT DATE: 20200911
